FAERS Safety Report 8935490 (Version 1)
Quarter: 2012Q4

REPORT INFORMATION
  Report Type: Spontaneous
  Country: US (occurrence: None)
  Receive Date: 20121128
  Receipt Date: 20121128
  Transmission Date: 20130627
  Serious: Yes (Hospitalization)
  Sender: FDA-Public Use
  Company Number: None

PATIENT
  Age: 67 Year
  Sex: Male
  Weight: 92.3 kg

DRUGS (2)
  1. ROPINIROLE [Suspect]
     Indication: RESTLESS LEG SYNDROME
     Dosage: 2 MG TID PO
     Route: 048
     Dates: start: 20081016, end: 20120910
  2. TRAZODONE [Suspect]
     Indication: INSOMNIA
     Dosage: 100 MG AT BEDTIME PO
     Route: 048
     Dates: start: 20080818, end: 20120910

REACTIONS (9)
  - Dysuria [None]
  - Arthralgia [None]
  - Dizziness [None]
  - Asthenia [None]
  - Nausea [None]
  - Hypophagia [None]
  - Bradyphrenia [None]
  - Hypersomnia [None]
  - Fall [None]
